FAERS Safety Report 15768259 (Version 1)
Quarter: 2018Q4

REPORT INFORMATION
  Report Type: Other
  Country: None (occurrence: FR)
  Receive Date: 20181227
  Receipt Date: 20181227
  Transmission Date: 20190205
  Serious: Yes (Other)
  Sender: FDA-Public Use
  Company Number: FR-LABORATOIRE HRA PHARMA-2060639

PATIENT
  Age: 50 Year
  Sex: Female

DRUGS (3)
  1. ETOPOSIDE. [Suspect]
     Active Substance: ETOPOSIDE
  2. LYSODREN [Suspect]
     Active Substance: MITOTANE
     Indication: ADRENOCORTICAL CARCINOMA
  3. CISPLATIN. [Concomitant]
     Active Substance: CISPLATIN

REACTIONS (3)
  - Drug interaction [Unknown]
  - Febrile bone marrow aplasia [Unknown]
  - Drug ineffective [Unknown]
